FAERS Safety Report 16712661 (Version 3)
Quarter: 2019Q3

REPORT INFORMATION
  Report Type: Report from Study
  Country: US (occurrence: US)
  Receive Date: 20190816
  Receipt Date: 20190918
  Transmission Date: 20191004
  Serious: Yes (Other)
  Sender: FDA-Public Use
  Company Number: PHEH2019US033168

PATIENT
  Age: 80 Year
  Sex: Female

DRUGS (4)
  1. LATANOPROST. [Suspect]
     Active Substance: LATANOPROST
     Dosage: 1 GTT, QD
     Route: 065
     Dates: start: 20160627, end: 201812
  2. TRAVATAN [Suspect]
     Active Substance: TRAVOPROST
     Indication: PRODUCT USED FOR UNKNOWN INDICATION
     Dosage: UNK
     Route: 065
     Dates: start: 20151031, end: 20151208
  3. LUMIGAN [Suspect]
     Active Substance: BIMATOPROST
     Indication: PRODUCT USED FOR UNKNOWN INDICATION
     Dosage: UNK
     Route: 065
     Dates: start: 20190710, end: 2019
  4. LATANOPROST. [Suspect]
     Active Substance: LATANOPROST
     Indication: INTRAOCULAR PRESSURE INCREASED
     Dosage: 1 GTT, QD
     Route: 065
     Dates: start: 20151208, end: 20160627

REACTIONS (8)
  - Eye irritation [Not Recovered/Not Resolved]
  - Angle closure glaucoma [Unknown]
  - Intraocular pressure increased [Not Recovered/Not Resolved]
  - Ocular hyperaemia [Unknown]
  - Vision blurred [Unknown]
  - Condition aggravated [Not Recovered/Not Resolved]
  - Drug ineffective [Not Recovered/Not Resolved]
  - Visual field defect [Unknown]

NARRATIVE: CASE EVENT DATE: 20160627
